FAERS Safety Report 10152957 (Version 1)
Quarter: 2014Q2

REPORT INFORMATION
  Report Type: Spontaneous
  Country: US (occurrence: US)
  Receive Date: 20140505
  Receipt Date: 20140505
  Transmission Date: 20141212
  Serious: No
  Sender: FDA-Public Use
  Company Number: US-GILEAD-2014-0101029

PATIENT
  Age: 60 Year
  Sex: Female

DRUGS (11)
  1. SOVALDI [Suspect]
     Indication: PRODUCT USED FOR UNKNOWN INDICATION
     Dosage: UNK
     Route: 065
     Dates: start: 20140402
  2. ATENOLOL [Suspect]
     Indication: PRODUCT USED FOR UNKNOWN INDICATION
     Dosage: 100 MG, UNK
     Route: 065
     Dates: end: 201404
  3. RIBAVIRIN [Concomitant]
     Dosage: UNK
     Dates: start: 20140402
  4. INTERFERON [Concomitant]
     Dosage: UNK
     Dates: start: 20140402
  5. ALENDRONATE SODIUM [Concomitant]
  6. DETROL LA [Concomitant]
  7. ZOLOFT [Concomitant]
  8. NAPROSYN                           /00256201/ [Concomitant]
  9. PERCOCET                           /00446701/ [Concomitant]
  10. XANAX [Concomitant]
  11. VITAMINS NOS [Concomitant]

REACTIONS (3)
  - Red blood cell count decreased [Unknown]
  - White blood cell count decreased [Unknown]
  - Dizziness [Unknown]
